FAERS Safety Report 4642769-7 (Version None)
Quarter: 2005Q2

REPORT INFORMATION
  Report Type: 
  Country: None (occurrence: None)
  Receive Date: 20050422
  Receipt Date: 20050411
  Transmission Date: 20051028
  Serious: Yes (Hospitalization)
  Sender: FDA-Public Use
  Company Number: FR-BRISTOL-MYERS SQUIBB COMPANY-12930533

PATIENT
  Age: 39 Year
  Sex: Male
  Weight: 60 kg

DRUGS (4)
  1. VIDEX [Suspect]
     Indication: HIV TEST POSITIVE
     Route: 048
     Dates: start: 20040609, end: 20041221
  2. VIRAMUNE [Suspect]
     Dates: start: 20000815, end: 20041221
  3. ZIAGEN [Suspect]
     Dates: start: 20000815, end: 20041221
  4. DITROPAN [Suspect]
     Indication: URINARY INCONTINENCE

REACTIONS (5)
  - ASTHENIA [None]
  - DIARRHOEA [None]
  - HEPATITIS CHOLESTATIC [None]
  - JAUNDICE [None]
  - PRURITUS [None]
